FAERS Safety Report 18672811 (Version 2)
Quarter: 2021Q2

REPORT INFORMATION
  Report Type: Report from Study
  Country: IT (occurrence: IT)
  Receive Date: 20201228
  Receipt Date: 20210512
  Transmission Date: 20210717
  Serious: Yes (Other)
  Sender: FDA-Public Use
  Company Number: IT-B.I. PHARMACEUTICALS,INC./RIDGEFIELD-2020-BI-071013

PATIENT
  Age: 75 Year
  Sex: Female
  Weight: 0 kg

DRUGS (5)
  1. RIFACOL [Concomitant]
     Active Substance: RIFAXIMIN
     Indication: PRODUCT USED FOR UNKNOWN INDICATION
     Dosage: COMPRESSE RIVESTITE CON FILM
     Route: 048
  2. LUCEN [ESOMEPRAZOLE MAGNESIUM] [Concomitant]
     Indication: PRODUCT USED FOR UNKNOWN INDICATION
     Dosage: LUCEN 20 MG COMPRESSE GASTRORESISTENTI
     Route: 048
  3. JENTADUETO [Suspect]
     Active Substance: LINAGLIPTIN\METFORMIN HYDROCHLORIDE
     Indication: TYPE 2 DIABETES MELLITUS
     Dosage: JENTADUETO 2.5 MG/850 MG FILM?COATED TABLETS, 2 DOSAGE FORM
     Route: 048
     Dates: start: 20180529, end: 20201201
  4. COVERLAM [Concomitant]
     Active Substance: AMLODIPINE BESYLATE\PERINDOPRIL ARGININE
     Indication: PRODUCT USED FOR UNKNOWN INDICATION
     Dosage: COVERLAM 10 MG/5 MG COMPRESSE?1DF
     Route: 048
  5. ALIFLUS [Concomitant]
     Active Substance: FLUTICASONE PROPIONATE\SALMETEROL XINAFOATE
     Indication: PRODUCT USED FOR UNKNOWN INDICATION
     Dosage: ALIFLUS DISKUS 50 MICROGRAMMI/250 MICROGRAMMI/DOSE DI POLVERE PER INAL?2DF
     Route: 055

REACTIONS (3)
  - Glycosylated haemoglobin increased [Unknown]
  - Diabetic metabolic decompensation [Unknown]
  - Hyperglycaemia [Unknown]

NARRATIVE: CASE EVENT DATE: 20201214
